FAERS Safety Report 7284819-8 (Version None)
Quarter: 2011Q1

REPORT INFORMATION
  Report Type: 
  Country: None (occurrence: None)
  Receive Date: 20110210
  Receipt Date: 20110207
  Transmission Date: 20110831
  Serious: Yes (Other)
  Sender: FDA-Public Use
  Company Number: US-PFIZER INC-2011027192

PATIENT
  Sex: Female

DRUGS (4)
  1. PAXIL [Concomitant]
  2. PROZAC [Concomitant]
  3. CHANTIX [Suspect]
     Dosage: UNK
     Dates: start: 20090101
  4. ABILIFY [Concomitant]

REACTIONS (3)
  - DEPRESSED MOOD [None]
  - HALLUCINATION [None]
  - ANGER [None]
